FAERS Safety Report 4919531-0 (Version None)
Quarter: 2006Q1

REPORT INFORMATION
  Report Type: 
  Country: None (occurrence: None)
  Receive Date: 20060216
  Receipt Date: 20060127
  Transmission Date: 20060701
  Serious: Yes (Hospitalization, Other)
  Sender: FDA-Public Use
  Company Number: US200601004861

PATIENT
  Age: 61 Year
  Sex: Female

DRUGS (7)
  1. HUMALOG [Suspect]
     Indication: DIABETES MELLITUS
     Dosage: SEE IMAGE
     Dates: end: 20030101
  2. HUMALOG [Suspect]
     Indication: DIABETES MELLITUS
     Dosage: SEE IMAGE
     Dates: start: 20030101
  3. ILETIN (INSULIN, ANIMAL) VIAL [Suspect]
  4. LANTUS [Concomitant]
  5. ACTOS [Concomitant]
  6. PRANDIN [Concomitant]
  7. GLIPIZIDE [Concomitant]

REACTIONS (11)
  - BLOOD GLUCOSE DECREASED [None]
  - BLOOD GLUCOSE INCREASED [None]
  - MALAISE [None]
  - MEMORY IMPAIRMENT [None]
  - MYOCARDIAL INFARCTION [None]
  - OEDEMA PERIPHERAL [None]
  - PHARMACEUTICAL PRODUCT COMPLAINT [None]
  - STOMACH DISCOMFORT [None]
  - THROMBOSIS [None]
  - VOMITING [None]
  - WEIGHT INCREASED [None]
